FAERS Safety Report 8819618 (Version 2)
Quarter: 2012Q4

REPORT INFORMATION
  Report Type: 
  Country: CA (occurrence: CA)
  Receive Date: 20121001
  Receipt Date: 20121107
  Transmission Date: 20130627
  Serious: Yes (Hospitalization, Other)
  Sender: FDA-Public Use
  Company Number: CA-AMGEN-CANSP2012061036

PATIENT
  Age: 53 Year
  Sex: Female

DRUGS (3)
  1. PROLIA [Suspect]
     Indication: OSTEOPOROSIS POSTMENOPAUSAL
     Dosage: 60 mg, q6mo
     Route: 058
     Dates: start: 20120217, end: 20120731
  2. DICLOFENAC [Concomitant]
     Indication: ARTHRALGIA
     Dosage: 50 mg, prn
     Route: 048
  3. CORTICOSTEROID NOS [Concomitant]

REACTIONS (4)
  - Tremor [Not Recovered/Not Resolved]
  - Hypoaesthesia [Not Recovered/Not Resolved]
  - Impaired driving ability [Not Recovered/Not Resolved]
  - Back disorder [Unknown]
